FAERS Safety Report 6410197-X (Version None)
Quarter: 2009Q4

REPORT INFORMATION
  Report Type: 
  Country: None (occurrence: None)
  Receive Date: 20091020
  Receipt Date: 20091020
  Transmission Date: 20100525
  Serious: Yes (Other)
  Sender: FDA-Public Use
  Company Number: None

PATIENT
  Age: 32 Year
  Sex: Female
  Weight: 55.7924 kg

DRUGS (4)
  1. TAMIFLU [Suspect]
     Indication: H1N1 INFLUENZA
     Dosage: 1 CAPSULE 2X DAILY PO
     Route: 048
     Dates: start: 20091017, end: 20091022
  2. TAMIFLU [Suspect]
     Indication: PAIN
     Dosage: 1 CAPSULE 2X DAILY PO
     Route: 048
     Dates: start: 20091017, end: 20091022
  3. TAMIFLU [Suspect]
     Indication: PYREXIA
     Dosage: 1 CAPSULE 2X DAILY PO
     Route: 048
     Dates: start: 20091017, end: 20091022
  4. TAMIFLU [Suspect]
     Indication: RESPIRATORY DISORDER
     Dosage: 1 CAPSULE 2X DAILY PO
     Route: 048
     Dates: start: 20091017, end: 20091022

REACTIONS (4)
  - DIZZINESS [None]
  - FATIGUE [None]
  - HALLUCINATION, VISUAL [None]
  - NAUSEA [None]
